FAERS Safety Report 8455950-6 (Version None)
Quarter: 2012Q2

REPORT INFORMATION
  Report Type: 
  Country: None (occurrence: None)
  Receive Date: 20120621
  Receipt Date: 20120607
  Transmission Date: 20120825
  Serious: Yes (Disabling, Other)
  Sender: FDA-Public Use
  Company Number: VE-ROCHE-1060006

PATIENT
  Sex: Female
  Weight: 74 kg

DRUGS (8)
  1. METFORMIN HYDROCHLORIDE [Concomitant]
     Indication: HYPERGLYCAEMIA
  2. FOLIC ACID [Concomitant]
  3. RIBAVIRIN [Concomitant]
     Indication: HEPATITIS C
     Route: 048
     Dates: start: 20120216
  4. CLONAZEPAM [Concomitant]
     Indication: PANIC DISORDER
  5. PANTOPRAZOLE [Concomitant]
     Indication: PROPHYLAXIS AGAINST GASTROINTESTINAL ULCER
  6. PEGINTERFERON ALFA-2A [Suspect]
     Indication: HEPATITIS C
     Route: 058
     Dates: start: 20120216
  7. PYRIDOSTIGMINE BROMIDE [Concomitant]
     Indication: MYASTHENIA GRAVIS
     Route: 048
     Dates: start: 20080401
  8. SERTRALINE HYDROCHLORIDE [Concomitant]
     Indication: DEPRESSION

REACTIONS (17)
  - WEIGHT DECREASED [None]
  - PYREXIA [None]
  - LEUKOPENIA [None]
  - LETHARGY [None]
  - DECREASED APPETITE [None]
  - NAUSEA [None]
  - DEPRESSION [None]
  - HEADACHE [None]
  - HAEMOGLOBIN DECREASED [None]
  - MYALGIA [None]
  - ABDOMINAL PAIN [None]
  - HYPERHIDROSIS [None]
  - ANAEMIA [None]
  - ASTHENIA [None]
  - MALAISE [None]
  - SYNCOPE [None]
  - TRANSAMINASES INCREASED [None]
